FAERS Safety Report 4833055-0 (Version None)
Quarter: 2005Q4

REPORT INFORMATION
  Report Type: 
  Country: None (occurrence: None)
  Receive Date: 20051121
  Receipt Date: 20051110
  Transmission Date: 20060501
  Serious: Yes (Other)
  Sender: FDA-Public Use
  Company Number: CA-ROCHE-424597

PATIENT
  Age: 74 Year
  Sex: Female

DRUGS (3)
  1. CLONAZEPAM [Suspect]
     Indication: DRUG USE FOR UNKNOWN INDICATION
     Dosage: DOSE DURATION: REPORTED AS 6 MONTHS (UNSPECIFIED AS TO WHETHER THERAPY WAS CONTINUED).
     Route: 048
  2. CELEXA [Suspect]
     Indication: DRUG USE FOR UNKNOWN INDICATION
     Dosage: DOSE DURATION: REPORTED AS 6 MONTHS (UNSPECIFIED AS TO WHETHER THERAPY WAS CONTINUED).
     Route: 048
  3. TRAZODONE [Suspect]
     Indication: DRUG USE FOR UNKNOWN INDICATION
     Route: 048

REACTIONS (10)
  - AGITATION [None]
  - COORDINATION ABNORMAL [None]
  - COUGH [None]
  - DYSPHAGIA [None]
  - HYPERREFLEXIA [None]
  - MUTISM [None]
  - MYOCLONUS [None]
  - SEROTONIN SYNDROME [None]
  - TONGUE PARALYSIS [None]
  - TREMOR [None]
